FAERS Safety Report 9526310 (Version 1)
Quarter: 2013Q1

REPORT INFORMATION
  Report Type: Spontaneous
  Country: US (occurrence: None)
  Receive Date: 20130305
  Receipt Date: 20130305
  Transmission Date: 20140127
  Serious: Yes (Other)
  Sender: FDA-Public Use
  Company Number: 163-21880-12020934

PATIENT
  Age: 86 Year
  Sex: Male

DRUGS (15)
  1. REVLIMID (LENALIDOMIDE) (CAPSULES) [Suspect]
     Indication: PLASMA CELL MYELOMA
     Route: 048
     Dates: start: 20101115
  2. Z-PAK (AZITHROMYCIN) [Concomitant]
  3. ADVAIR DISKUS (SERETIDE MITE) [Concomitant]
  4. ASPIRIN (ACETYLSALICYLIC ACID) [Concomitant]
  5. BACLOFEN [Concomitant]
  6. CARVEDILOL [Concomitant]
  7. DEXAMETHASONE [Concomitant]
  8. DOXAZOSIN [Concomitant]
  9. GABAPENTIN [Concomitant]
  10. KLOR-CON M20 (POTASSIUM CHLORIDE) [Concomitant]
  11. LACTULOSE [Concomitant]
  12. MULTIVITAMINS [Concomitant]
  13. NITROGLYCERIN (GLYCERYL TRINITRATE) [Concomitant]
  14. OMEPRAZOLE [Concomitant]
  15. OXYCODONE [Concomitant]

REACTIONS (4)
  - Chronic obstructive pulmonary disease [None]
  - Blister [None]
  - Stomatitis [None]
  - Bronchitis [None]
